FAERS Safety Report 16103714 (Version 1)
Quarter: 2019Q1

REPORT INFORMATION
  Report Type: Report from Study
  Country: US (occurrence: US)
  Receive Date: 20190322
  Receipt Date: 20190322
  Transmission Date: 20190418
  Serious: Yes (Hospitalization, Other)
  Sender: FDA-Public Use
  Company Number: US-BIOGEN-2019BI00710718

PATIENT
  Age: 72 Year
  Sex: Male

DRUGS (1)
  1. TYSABRI [Suspect]
     Active Substance: NATALIZUMAB
     Indication: MULTIPLE SCLEROSIS
     Route: 065
     Dates: start: 20181210

REACTIONS (5)
  - Malignant melanoma [Unknown]
  - Decubitus ulcer [Unknown]
  - Faecaloma [Unknown]
  - Pneumonia [Unknown]
  - Adhesion [Unknown]

NARRATIVE: CASE EVENT DATE: 20181230
